FAERS Safety Report 6150834-0 (Version None)
Quarter: 2009Q2

REPORT INFORMATION
  Report Type: 
  Country: None (occurrence: None)
  Receive Date: 20090408
  Receipt Date: 20090330
  Transmission Date: 20091009
  Serious: Yes (Death)
  Sender: FDA-Public Use
  Company Number: 2009AP001243

PATIENT
  Age: 27 Year
  Sex: Male

DRUGS (2)
  1. FLUOXETINE HYDROCHLORIDE [Suspect]
  2. ZYPREXA [Suspect]

REACTIONS (4)
  - ACCIDENTAL DEATH [None]
  - DRUG TOXICITY [None]
  - SKIN INJURY [None]
  - VOMITING [None]
